FAERS Safety Report 20798669 (Version 1)
Quarter: 2022Q2

REPORT INFORMATION
  Report Type: Spontaneous
  Country: US (occurrence: US)
  Receive Date: 20220507
  Receipt Date: 20220507
  Transmission Date: 20220721
  Serious: No
  Sender: FDA-Public Use
  Company Number: US-NOVARTISTESTPH-NVSC2022US105635

PATIENT
  Sex: Female
  Weight: 59.864 kg

DRUGS (2)
  1. TASIGNA [Suspect]
     Active Substance: NILOTINIB
     Indication: Chronic myeloid leukaemia
     Dosage: 500 MG, BID
     Route: 048
     Dates: start: 2014, end: 20220427
  2. TASIGNA [Suspect]
     Active Substance: NILOTINIB
     Indication: B-cell type acute leukaemia

REACTIONS (1)
  - Pain in extremity [Unknown]
